FAERS Safety Report 5745672-4 (Version None)
Quarter: 2008Q2

REPORT INFORMATION
  Report Type: 
  Country: None (occurrence: None)
  Receive Date: 20080521
  Receipt Date: 20080516
  Transmission Date: 20081010
  Serious: Yes (Other)
  Sender: FDA-Public Use
  Company Number: CH-BOEHRINGER INGELHEIM GMBH, GERMANY-2008-BP-07723RO

PATIENT
  Age: 40 Year
  Sex: Male

DRUGS (4)
  1. METHADONE HCL [Suspect]
     Indication: DRUG DEPENDENCE
  2. INTERFERON-RIBAVIRIN [Suspect]
     Indication: HEPATIC CIRRHOSIS
  3. IRON SUBSTITUTE [Concomitant]
     Indication: ANAEMIA
  4. THYROID HORMONE REPLACEMENT [Concomitant]
     Indication: AUTOIMMUNE THYROIDITIS

REACTIONS (6)
  - ANAEMIA MACROCYTIC [None]
  - AUTOIMMUNE THYROIDITIS [None]
  - FATIGUE [None]
  - HYPOTHYROIDISM [None]
  - OEDEMA PERIPHERAL [None]
  - SWELLING FACE [None]
